FAERS Safety Report 4643252-5 (Version None)
Quarter: 2005Q2

REPORT INFORMATION
  Report Type: 
  Country: None (occurrence: None)
  Receive Date: 20050422
  Receipt Date: 20050413
  Transmission Date: 20051028
  Serious: Yes (Disabling)
  Sender: FDA-Public Use
  Company Number: 200511534BCC

PATIENT
  Age: 44 Year
  Sex: Male
  Weight: 85.2762 kg

DRUGS (5)
  1. ASPIRIN [Suspect]
     Indication: CEREBROVASCULAR ACCIDENT
     Dosage: 81 MG, QD, ORAL
     Route: 048
  2. ASPIRIN [Suspect]
     Indication: MYOCARDIAL INFARCTION
     Dosage: 81 MG, QD, ORAL
     Route: 048
  3. ASPIRIN [Suspect]
     Indication: PROPHYLAXIS
     Dosage: 81 MG, QD, ORAL
     Route: 048
  4. LIPITOR [Concomitant]
  5. VITAMIN C [Concomitant]

REACTIONS (2)
  - HYPOACUSIS [None]
  - TINNITUS [None]
